FAERS Safety Report 12542230 (Version 4)
Quarter: 2016Q4

REPORT INFORMATION
  Report Type: Spontaneous
  Country: US (occurrence: US)
  Receive Date: 20160708
  Receipt Date: 20161026
  Transmission Date: 20170207
  Serious: No
  Sender: FDA-Public Use
  Company Number: US-ACTELION-A-US2016-138660

PATIENT
  Age: 11 Year
  Sex: Female

DRUGS (5)
  1. COUMADIN [Concomitant]
     Active Substance: WARFARIN SODIUM
  2. REMODULIN [Suspect]
     Active Substance: TREPROSTINIL
     Indication: PRODUCT USED FOR UNKNOWN INDICATION
     Route: 065
  3. TYVASO [Concomitant]
     Active Substance: TREPROSTINIL
  4. TRACLEER [Suspect]
     Active Substance: BOSENTAN
     Indication: PULMONARY HYPERTENSION
     Dosage: 31.25 MG, BID VIA G-TUBE
     Route: 048
     Dates: start: 20131111
  5. ADCIRCA [Concomitant]
     Active Substance: TADALAFIL

REACTIONS (6)
  - Nasopharyngitis [Unknown]
  - Condition aggravated [Unknown]
  - Feeling abnormal [Unknown]
  - Vomiting [Unknown]
  - Epistaxis [Unknown]
  - Pulmonary arterial hypertension [Unknown]

NARRATIVE: CASE EVENT DATE: 20161011
